FAERS Safety Report 23879637 (Version 1)
Quarter: 2024Q2

REPORT INFORMATION
  Report Type: Spontaneous
  Country: US (occurrence: US)
  Receive Date: 20240521
  Receipt Date: 20240521
  Transmission Date: 20240716
  Serious: No
  Sender: FDA-Public Use
  Company Number: US-HORIZON THERAPEUTICS-HZN-2024-000463

PATIENT

DRUGS (7)
  1. KRYSTEXXA [Suspect]
     Active Substance: PEGLOTICASE
     Indication: Product used for unknown indication
     Dosage: FIRST INFUSION
     Route: 042
     Dates: start: 20231010
  2. KRYSTEXXA [Suspect]
     Active Substance: PEGLOTICASE
     Dosage: SECOND INFUSION
     Route: 042
     Dates: start: 20231023
  3. KRYSTEXXA [Suspect]
     Active Substance: PEGLOTICASE
     Dosage: THIRD INFUSION
     Route: 042
     Dates: start: 20231106
  4. KRYSTEXXA [Suspect]
     Active Substance: PEGLOTICASE
     Dosage: FOURTH INFUSION
     Route: 042
     Dates: start: 20231120
  5. KRYSTEXXA [Suspect]
     Active Substance: PEGLOTICASE
     Dosage: FIFTH INFUSION
     Route: 042
     Dates: start: 20231204
  6. KRYSTEXXA [Suspect]
     Active Substance: PEGLOTICASE
     Dosage: SIXTH INFUSION
     Route: 042
     Dates: start: 20231218
  7. KRYSTEXXA [Suspect]
     Active Substance: PEGLOTICASE
     Dosage: SEVENTH INFUSION
     Route: 042
     Dates: start: 20240108

REACTIONS (4)
  - Blood uric acid increased [Unknown]
  - Blood uric acid increased [Unknown]
  - Blood uric acid increased [Unknown]
  - Inappropriate schedule of product administration [Unknown]

NARRATIVE: CASE EVENT DATE: 20231010
